FAERS Safety Report 25984168 (Version 1)
Quarter: 2025Q4

REPORT INFORMATION
  Report Type: Spontaneous
  Country: US (occurrence: US)
  Receive Date: 20251031
  Receipt Date: 20251031
  Transmission Date: 20260118
  Serious: No
  Sender: GLAND PHARMA LTD
  Company Number: US-GLANDPHARMA-US-2025GLNSPO01976

PATIENT
  Age: 51 Year
  Sex: Male

DRUGS (3)
  1. CISPLATIN [Suspect]
     Active Substance: CISPLATIN
     Indication: Bladder cancer
     Dosage: 12 WEEKS, 6 COURSES
     Route: 065
     Dates: start: 202504, end: 202506
  2. DOXORUBICIN HYDROCHLORIDE [Suspect]
     Active Substance: DOXORUBICIN HYDROCHLORIDE
     Indication: Bladder cancer
     Dosage: 12 WEEKS, SIX COURSES
     Route: 065
     Dates: start: 202504, end: 202506
  3. VINBLASTINE [Suspect]
     Active Substance: VINBLASTINE
     Indication: Bladder cancer
     Route: 065
     Dates: start: 202504, end: 202506

REACTIONS (3)
  - Taste disorder [Unknown]
  - Fatigue [Unknown]
  - Nausea [Unknown]

NARRATIVE: CASE EVENT DATE: 20250101
